FAERS Safety Report 12986727 (Version 1)
Quarter: 2016Q4

REPORT INFORMATION
  Report Type: Spontaneous
  Country: TR (occurrence: TR)
  Receive Date: 20161130
  Receipt Date: 20161130
  Transmission Date: 20170207
  Serious: Yes (Other)
  Sender: FDA-Public Use
  Company Number: TR-G+W LABS-GW2016TR000183

PATIENT

DRUGS (1)
  1. METRONIDAZOLE. [Suspect]
     Active Substance: METRONIDAZOLE
     Indication: AMOEBIASIS
     Route: 048

REACTIONS (1)
  - Neurotoxicity [Recovered/Resolved]
